FAERS Safety Report 7087126-1 (Version None)
Quarter: 2010Q4

REPORT INFORMATION
  Report Type: 
  Country: None (occurrence: None)
  Receive Date: 20101106
  Receipt Date: 20101028
  Transmission Date: 20110411
  Serious: No
  Sender: FDA-Public Use
  Company Number: US-WYE-H18437210

PATIENT
  Age: 33 Year
  Sex: Female
  Weight: 79 kg

DRUGS (4)
  1. PRISTIQ [Suspect]
     Indication: MAJOR DEPRESSION
     Route: 048
     Dates: start: 20100317, end: 20100101
  2. PRISTIQ [Suspect]
     Route: 048
     Dates: start: 20100101, end: 20100101
  3. PRISTIQ [Suspect]
     Route: 048
     Dates: start: 20100101, end: 20101001
  4. PRISTIQ [Suspect]
     Route: 048
     Dates: start: 20101001

REACTIONS (1)
  - ANORGASMIA [None]
